FAERS Safety Report 20361087 (Version 1)
Quarter: 2022Q1

REPORT INFORMATION
  Report Type: Spontaneous
  Country: US (occurrence: None)
  Receive Date: 20220120
  Receipt Date: 20220120
  Transmission Date: 20220423
  Serious: Yes (Hospitalization)
  Sender: FDA-Public Use
  Company Number: None

PATIENT
  Age: 57 Year
  Sex: Male
  Weight: 98.7 kg

DRUGS (10)
  1. JARDIANCE [Suspect]
     Active Substance: EMPAGLIFLOZIN
     Indication: Euglycaemic diabetic ketoacidosis
     Dosage: FREQUENCY : DAILY;?
     Route: 048
  2. ASPIRIN [Concomitant]
     Active Substance: ASPIRIN
  3. LIPITOR [Concomitant]
     Active Substance: ATORVASTATIN CALCIUM
  4. TOUJEO [Concomitant]
     Active Substance: INSULIN GLARGINE
  5. LISINOPRIL [Concomitant]
     Active Substance: LISINOPRIL
  6. MELOXICAM [Concomitant]
     Active Substance: MELOXICAM
  7. METFORMIN [Concomitant]
     Active Substance: METFORMIN HYDROCHLORIDE
  8. VITAMINS [Concomitant]
     Active Substance: VITAMINS
  9. VITAMINS [Concomitant]
     Active Substance: VITAMINS
  10. OZEMPIC [Concomitant]
     Active Substance: SEMAGLUTIDE

REACTIONS (3)
  - Euglycaemic diabetic ketoacidosis [None]
  - Hypocalcaemia [None]
  - Hyponatraemia [None]

NARRATIVE: CASE EVENT DATE: 20220118
